FAERS Safety Report 4933491-8 (Version None)
Quarter: 2006Q1

REPORT INFORMATION
  Report Type: 
  Country: None (occurrence: None)
  Receive Date: 20060306
  Receipt Date: 20051019
  Transmission Date: 20060701
  Serious: Yes (Hospitalization, Disabling)
  Sender: FDA-Public Use
  Company Number: US-MERCK-0510USA08097

PATIENT
  Age: 55 Year
  Sex: Female
  Weight: 91 kg

DRUGS (8)
  1. VIOXX [Suspect]
     Indication: ARTHRALGIA
     Route: 048
     Dates: start: 20030113, end: 20030101
  2. ASPIRIN [Concomitant]
     Indication: HEADACHE
     Route: 065
  3. PREMARIN [Concomitant]
     Indication: MENOPAUSAL SYMPTOMS
     Route: 065
     Dates: start: 19970101
  4. NAPROSYN [Concomitant]
     Indication: ARTHRITIS
     Route: 065
     Dates: start: 19990101
  5. CELEXA [Concomitant]
     Indication: DEPRESSION
     Route: 065
  6. PROVERA [Concomitant]
     Indication: PROPHYLAXIS
     Route: 065
  7. ALLEGRA [Concomitant]
     Indication: SEASONAL ALLERGY
     Route: 065
  8. PREMPRO [Concomitant]
     Indication: MENOPAUSAL SYMPTOMS
     Route: 065
     Dates: start: 19970101

REACTIONS (3)
  - ABDOMINAL PAIN [None]
  - DEEP VEIN THROMBOSIS [None]
  - THROMBOSIS [None]
